FAERS Safety Report 6983981-1 (Version None)
Quarter: 2010Q3

REPORT INFORMATION
  Report Type: 
  Country: None (occurrence: None)
  Receive Date: 20100915
  Receipt Date: 20090514
  Transmission Date: 20110219
  Serious: No
  Sender: FDA-Public Use
  Company Number: US-WYE-H09159409

PATIENT
  Sex: Female

DRUGS (2)
  1. ADVIL LIQUI-GELS [Suspect]
     Indication: ARTHRALGIA
     Dosage: UNKNOWN
     Route: 048
  2. ADVIL LIQUI-GELS [Suspect]
     Dosage: 2 CAPSULES ONCE (TOTAL OF 4 DOSES)
     Route: 048
     Dates: start: 20090426, end: 20090427

REACTIONS (3)
  - CONTUSION [None]
  - RASH [None]
  - URTICARIA [None]
